FAERS Safety Report 8457342 (Version 3)
Quarter: 2014Q1

REPORT INFORMATION
  Report Type: Spontaneous
  Country: US (occurrence: US)
  Receive Date: 20120314
  Receipt Date: 20140206
  Transmission Date: 20141002
  Serious: No
  Sender: FDA-Public Use
  Company Number: US-JNJFOC-20120302564

PATIENT
  Age: 45 Year
  Sex: Female
  Weight: 55.34 kg

DRUGS (2)
  1. DURAGESIC [Suspect]
     Indication: PAIN
     Route: 062
     Dates: start: 201112
  2. MORPHINE SULFATE [Concomitant]
     Indication: BREAKTHROUGH PAIN
     Route: 065
     Dates: start: 2008

REACTIONS (4)
  - Breakthrough pain [Not Recovered/Not Resolved]
  - Wrong technique in drug usage process [Unknown]
  - Wrong technique in drug usage process [Not Recovered/Not Resolved]
  - Product quality issue [Unknown]
